FAERS Safety Report 9366223 (Version 1)
Quarter: 2013Q2

REPORT INFORMATION
  Report Type: Spontaneous
  Country: CN (occurrence: CN)
  Receive Date: 20130625
  Receipt Date: 20130625
  Transmission Date: 20140414
  Serious: Yes (Other)
  Sender: FDA-Public Use
  Company Number: CN-PFIZER INC-2013184185

PATIENT
  Age: 44 Year
  Sex: Male

DRUGS (5)
  1. CEFOBID [Suspect]
     Indication: INFECTION
     Dosage: 4 G, TWICE DAILY
     Route: 041
     Dates: start: 20120803, end: 20120812
  2. ORNITHINE ASPARTATE [Concomitant]
     Dosage: UNK
     Dates: start: 201208
  3. VITAMIN B6 [Concomitant]
     Dosage: UNK
     Dates: start: 201208
  4. VITAMIN C [Concomitant]
     Dosage: UNK
     Dates: start: 201208
  5. GLUCOSE [Concomitant]
     Dosage: UNK
     Dates: start: 201208

REACTIONS (1)
  - Haemorrhage subcutaneous [Recovered/Resolved]
